FAERS Safety Report 4918130-4 (Version None)
Quarter: 2006Q1

REPORT INFORMATION
  Report Type: 
  Country: None (occurrence: None)
  Receive Date: 20060221
  Receipt Date: 20050823
  Transmission Date: 20060701
  Serious: Yes (Hospitalization, Other)
  Sender: FDA-Public Use
  Company Number: US-MERCK-0508USA03942

PATIENT
  Age: 52 Year
  Sex: Female
  Weight: 82 kg

DRUGS (8)
  1. VIOXX [Suspect]
     Indication: RHEUMATOID ARTHRITIS
     Route: 048
     Dates: start: 20011001, end: 20020401
  2. GLUCOPHAGE [Concomitant]
     Route: 065
  3. ALTACE [Concomitant]
     Route: 065
  4. ULTRAM [Concomitant]
     Route: 065
  5. LIPITOR [Concomitant]
     Route: 065
  6. ACTOS [Concomitant]
     Route: 065
  7. GLYBURIDE [Concomitant]
     Route: 065
  8. LEVAQUIN [Concomitant]
     Route: 065

REACTIONS (8)
  - CARDIAC DISORDER [None]
  - CARDIAC FAILURE CONGESTIVE [None]
  - CORONARY ARTERY DISEASE [None]
  - GASTRIC DISORDER [None]
  - GASTRIC POLYPS [None]
  - HYPERTENSION [None]
  - MYOCARDIAL INFARCTION [None]
  - TRANSIENT ISCHAEMIC ATTACK [None]
